FAERS Safety Report 22084723 (Version 1)
Quarter: 2023Q1

REPORT INFORMATION
  Report Type: Report from Study
  Country: PR (occurrence: PR)
  Receive Date: 20230310
  Receipt Date: 20230310
  Transmission Date: 20230417
  Serious: Yes (Death)
  Sender: FDA-Public Use
  Company Number: PR-ABBVIE-4334482

PATIENT
  Sex: Female
  Weight: 107 kg

DRUGS (7)
  1. VENCLEXTA [Suspect]
     Active Substance: VENETOCLAX
     Indication: Acute myeloid leukaemia
     Dosage: STOP DATE TEXT: UNKNOWN
     Route: 048
     Dates: start: 202211
  2. ALLOPURINOL [Concomitant]
     Active Substance: ALLOPURINOL
     Indication: Product used for unknown indication
     Dosage: FORM STRENGTH: 100 MILLIGRAM?STOP DATE TEXT: UNKNOWN
     Route: 048
     Dates: start: 20220822
  3. METFORMIN HYDROCHLORIDE [Concomitant]
     Active Substance: METFORMIN HYDROCHLORIDE
     Indication: Product used for unknown indication
     Dosage: FORM STRENGTH: 500 MILLIGRAM?STOP DATE TEXT: UNKNOWN
     Route: 048
     Dates: start: 20220822
  4. HYDRALAZINE HCL [Concomitant]
     Active Substance: HYDRALAZINE HYDROCHLORIDE
     Indication: Product used for unknown indication
     Dosage: FORM STRENGTH: 100 MILLIGRAM??STOP DATE TEXT: UNKNOWN
     Route: 048
     Dates: start: 20220822
  5. LOSARTAN POTASSIUM [Concomitant]
     Active Substance: LOSARTAN POTASSIUM
     Indication: Product used for unknown indication
     Dosage: FORM STRENGTH: 50 GRAM?STOP DATE TEXT: UNKNOWN
     Route: 048
     Dates: start: 20220822
  6. FUROSEMIDE [Concomitant]
     Active Substance: FUROSEMIDE
     Indication: Product used for unknown indication
     Dosage: FORM STRENGTH: 20 MILLIGRAM?STOP DATE TEXT: UNKNOWN
     Route: 048
     Dates: start: 20220822
  7. METOPROLOL TARTRATE [Concomitant]
     Active Substance: METOPROLOL TARTRATE
     Indication: Product used for unknown indication
     Dosage: FORM STRENGTH: 50 MILLIGRAM?STOP DATE TEXT: UNKNOWN
     Route: 048
     Dates: start: 20220822

REACTIONS (1)
  - Death [Fatal]

NARRATIVE: CASE EVENT DATE: 20230303
